FAERS Safety Report 4360838-6 (Version None)
Quarter: 2004Q2

REPORT INFORMATION
  Report Type: 
  Country: None (occurrence: None)
  Receive Date: 20040517
  Receipt Date: 20040507
  Transmission Date: 20050107
  Serious: Yes (Hospitalization)
  Sender: FDA-Public Use
  Company Number: E044-316-3287

PATIENT
  Age: 65 Year
  Sex: Female
  Weight: 62 kg

DRUGS (13)
  1. DONEPEZIL HCL [Suspect]
     Indication: DEMENTIA
     Dosage: 5 MG, 1 IN 1 D, ORAL; 5 MG, 1 IN 1 D, ORAL
     Route: 048
     Dates: start: 20031114, end: 20030127
  2. DONEPEZIL HCL [Suspect]
     Indication: DEMENTIA
     Dosage: 5 MG, 1 IN 1 D, ORAL; 5 MG, 1 IN 1 D, ORAL
     Route: 048
     Dates: start: 20031017, end: 20031113
  3. CABERGOLINE [Suspect]
     Indication: PARKINSON'S DISEASE
     Dosage: 2 MG, ORAL
     Route: 048
     Dates: start: 20000101, end: 20040218
  4. PARACETAMOL/CODEINE PHOSPHATE (PANADEINE CO) [Concomitant]
  5. CARBIDOPA/LEVODOPA (SINEMET) [Concomitant]
  6. CITALOPRAM HYDROBROMIDE (CITALOPRAM HYDROBROMIDE) [Concomitant]
  7. MORPHINE SULFATE [Concomitant]
  8. CELECOXIB (CELECOXIB) [Concomitant]
  9. DIAZEPAM [Concomitant]
  10. BISACODYL (BISACODYL) [Concomitant]
  11. CALCIUM CARBONATE (CALCIUM CARBONATE) [Concomitant]
  12. OLANZAPINE [Concomitant]
  13. QUININE SULFATE (QUININE SULFATE) [Concomitant]

REACTIONS (7)
  - ABNORMAL BEHAVIOUR [None]
  - BIPOLAR DISORDER [None]
  - DELUSIONAL DISORDER, PERSECUTORY TYPE [None]
  - DEPRESSION [None]
  - HYPOMANIA [None]
  - MANIA [None]
  - THINKING ABNORMAL [None]
